FAERS Safety Report 16246857 (Version 1)
Quarter: 2019Q2

REPORT INFORMATION
  Report Type: Spontaneous
  Country: GB (occurrence: GB)
  Receive Date: 20190427
  Receipt Date: 20190427
  Transmission Date: 20190711
  Serious: Yes (Death)
  Sender: FDA-Public Use
  Company Number: UK-ACCORD-002628

PATIENT
  Sex: Female

DRUGS (3)
  1. SIMVASTATIN. [Suspect]
     Active Substance: SIMVASTATIN
     Route: 048
  2. IBUPROFEN. [Suspect]
     Active Substance: IBUPROFEN
  3. ACETYLSALICYLIC ACID [Suspect]
     Active Substance: ASPIRIN

REACTIONS (2)
  - Death [Fatal]
  - Intentional overdose [Fatal]
